FAERS Safety Report 24251083 (Version 2)
Quarter: 2024Q3

REPORT INFORMATION
  Report Type: Spontaneous
  Country: US (occurrence: US)
  Receive Date: 20240826
  Receipt Date: 20240911
  Transmission Date: 20241016
  Serious: Yes (Other)
  Sender: MYLAN
  Company Number: US-MYLANLABS-2024M1076717

PATIENT
  Age: 27 Year
  Sex: Male
  Weight: 45.36 kg

DRUGS (1)
  1. WIXELA INHUB [Suspect]
     Active Substance: FLUTICASONE PROPIONATE\SALMETEROL XINAFOATE
     Indication: Product used for unknown indication
     Dosage: 100/50 MICROGRAM
     Route: 065
     Dates: end: 20240814

REACTIONS (5)
  - Rectal haemorrhage [Recovering/Resolving]
  - Anorectal discomfort [Recovering/Resolving]
  - Pain [Recovering/Resolving]
  - Liver function test increased [Unknown]
  - Dyspepsia [Unknown]
